FAERS Safety Report 4457931-6 (Version None)
Quarter: 2004Q3

REPORT INFORMATION
  Report Type: 
  Country: None (occurrence: None)
  Receive Date: 20040922
  Receipt Date: 20040914
  Transmission Date: 20050211
  Serious: Yes (Hospitalization)
  Sender: FDA-Public Use
  Company Number: 2004CG01813

PATIENT
  Age: 68 Year
  Sex: Male

DRUGS (7)
  1. OMEPRAZOLE [Suspect]
     Dosage: 20 MG QD PO
     Route: 048
     Dates: start: 20040723, end: 20040824
  2. CIPROFLOXACIN [Suspect]
     Dosage: 1.5 GR QD PO
     Route: 048
     Dates: start: 20040802, end: 20040824
  3. PRIMAXIN [Suspect]
     Dosage: 2 GR QD IV
     Route: 042
     Dates: start: 20040723, end: 20040824
  4. PLAVIX [Suspect]
     Dosage: 1 DF QD PO
     Route: 048
     Dates: start: 20040723, end: 20040824
  5. DIAMICRON [Concomitant]
  6. COTAREG ^NOVARTIS^ [Concomitant]
  7. ZATRAL [Concomitant]

REACTIONS (3)
  - AGRANULOCYTOSIS [None]
  - DERMATITIS EXFOLIATIVE [None]
  - NEUTROPHIL COUNT INCREASED [None]
